FAERS Safety Report 21951919 (Version 3)
Quarter: 2023Q1

REPORT INFORMATION
  Report Type: Report from Study
  Country: US (occurrence: None)
  Receive Date: 20230203
  Receipt Date: 20230221
  Transmission Date: 20230418
  Serious: Yes (Life-Threatening, Hospitalization)
  Sender: FDA-Public Use
  Company Number: US-ROCHE-3274716

PATIENT
  Age: 27 Year
  Sex: Female
  Weight: 72.1 kg

DRUGS (4)
  1. ATEZOLIZUMAB [Suspect]
     Active Substance: ATEZOLIZUMAB
     Indication: Colon cancer stage III
     Dosage: SHE RECEIVED THE LAST DOSE OF ATEZOLIZUMAB ON 14/DEC/2022 (CYCLE 18, DAY 1)
     Route: 041
     Dates: start: 20220223
  2. LEUCOVORIN CALCIUM [Suspect]
     Active Substance: LEUCOVORIN CALCIUM
     Indication: Colon cancer stage III
     Dosage: OVER 2 HOURS ON DAY 1
     Route: 042
  3. FLUOROURACIL [Suspect]
     Active Substance: FLUOROURACIL
     Indication: Colon cancer stage III
     Dosage: FOLLOWED BY 2400 MG/M2 IV OVER 46 HOURS DAYS 1-3
     Route: 042
  4. OXALIPLATIN [Suspect]
     Active Substance: OXALIPLATIN
     Indication: Colon cancer stage III
     Dosage: OVER 2 HOURS ON DAY 1, CYCLES 1-12, CYCLE = 14 DAYS
     Route: 042

REACTIONS (3)
  - Maternal exposure during pregnancy [Unknown]
  - Ectopic pregnancy [Unknown]
  - Abdominal pain [Recovering/Resolving]

NARRATIVE: CASE EVENT DATE: 20221224
